FAERS Safety Report 15829489 (Version 1)
Quarter: 2019Q1

REPORT INFORMATION
  Report Type: Spontaneous
  Country: US (occurrence: US)
  Receive Date: 20190115
  Receipt Date: 20190115
  Transmission Date: 20190417
  Serious: No
  Sender: FDA-Public Use
  Company Number: US-PERRIGO-18US002601

PATIENT
  Age: 71 Year
  Sex: Female
  Weight: 70.3 kg

DRUGS (1)
  1. TRETINOIN. [Suspect]
     Active Substance: TRETINOIN
     Indication: ROUTINE HEALTH MAINTENANCE
     Dosage: 1 APPLICATION, QOD
     Route: 061
     Dates: start: 20180202

REACTIONS (2)
  - Off label use [Unknown]
  - Product administered to patient of inappropriate age [Not Recovered/Not Resolved]

NARRATIVE: CASE EVENT DATE: 20180202
